FAERS Safety Report 8363347-2 (Version None)
Quarter: 2012Q1

REPORT INFORMATION
  Report Type: 
  Country: None (occurrence: None)
  Receive Date: 20120323
  Receipt Date: 20110516
  Transmission Date: 20120608
  Serious: Yes (Hospitalization)
  Sender: FDA-Public Use
  Company Number: 163-21880-11052113

PATIENT
  Age: 71 Year
  Sex: Male

DRUGS (9)
  1. LORTAB [Concomitant]
  2. LIPITOR [Concomitant]
  3. MEGESTROL ACETATE [Concomitant]
  4. OXYCONTIN [Concomitant]
  5. DEXAMETHASONE [Concomitant]
  6. REVLIMID [Suspect]
     Indication: MULTIPLE MYELOMA
     Dosage: 25 MG, DAILY X 14 DAYS, PO;
     Route: 048
     Dates: start: 20110427
  7. LUNESTA [Concomitant]
  8. PROMETHAZINE [Concomitant]
  9. ONDANSETRON [Concomitant]

REACTIONS (1)
  - ANAEMIA [None]
